FAERS Safety Report 4778066-9 (Version None)
Quarter: 2005Q3

REPORT INFORMATION
  Report Type: 
  Country: None (occurrence: None)
  Receive Date: 20050922
  Receipt Date: 20050728
  Transmission Date: 20060218
  Serious: Yes (Hospitalization, Other)
  Sender: FDA-Public Use
  Company Number: 200512420GDS

PATIENT
  Age: 75 Year
  Sex: Female

DRUGS (7)
  1. PROCARDIA [Suspect]
     Indication: HYPERTENSION
  2. ALEVE [Suspect]
     Indication: COMPRESSION FRACTURE
     Dates: start: 20050101
  3. MINIPRESS [Suspect]
     Indication: HYPERTENSION
     Dates: start: 20050721
  4. ZESTRIL [Suspect]
     Indication: HYPERTENSION
     Dosage: 20 MG, TOTAL DAILY
     Dates: end: 20050101
  5. TIAZAC [Concomitant]
  6. NORVASC [Concomitant]
  7. DEMADEX [Concomitant]

REACTIONS (10)
  - BLOOD CREATININE INCREASED [None]
  - BLOOD UREA INCREASED [None]
  - COMPRESSION FRACTURE [None]
  - DRUG EFFECT DECREASED [None]
  - FEMORAL ARTERY OCCLUSION [None]
  - GASTRIC HAEMORRHAGE [None]
  - GASTROINTESTINAL HAEMORRHAGE [None]
  - HAEMOGLOBIN DECREASED [None]
  - RENAL ARTERY OCCLUSION [None]
  - RENAL IMPAIRMENT [None]
